FAERS Safety Report 11377660 (Version 2)
Quarter: 2015Q3

REPORT INFORMATION
  Report Type: Spontaneous
  Country: US (occurrence: US)
  Receive Date: 20150811
  Receipt Date: 20150903
  Transmission Date: 20151125
  Serious: No
  Sender: FDA-Public Use
  Company Number: US-ELI_LILLY_AND_COMPANY-US200906004972

PATIENT
  Sex: Male

DRUGS (4)
  1. COUMADIN [Concomitant]
     Active Substance: WARFARIN SODIUM
  2. HUMULIN L [Suspect]
     Active Substance: INSULIN HUMAN
  3. LANTUS [Concomitant]
     Active Substance: INSULIN GLARGINE
  4. HUMALOG [Suspect]
     Active Substance: INSULIN LISPRO

REACTIONS (6)
  - Incorrect route of drug administration [Unknown]
  - Mobility decreased [Unknown]
  - Limb discomfort [Recovering/Resolving]
  - Blood glucose decreased [Unknown]
  - Blood glucose increased [Unknown]
  - Injection site bruising [Unknown]
